FAERS Safety Report 22322596 (Version 1)
Quarter: 2023Q2

REPORT INFORMATION
  Report Type: Spontaneous
  Country: US (occurrence: US)
  Receive Date: 20230516
  Receipt Date: 20230516
  Transmission Date: 20230722
  Serious: No
  Sender: FDA-Public Use
  Company Number: US-Axsome Therapeutics, Inc.-AXS202211-003446

PATIENT
  Sex: Female
  Weight: 112.14 kg

DRUGS (23)
  1. SUNOSI [Suspect]
     Active Substance: SOLRIAMFETOL
     Indication: Product used for unknown indication
     Dosage: 1-2 TAB(S) QAM - ONCE A DAY (IN THE MORNING)
     Route: 048
     Dates: start: 20220927
  2. SUNOSI [Suspect]
     Active Substance: SOLRIAMFETOL
     Dosage: 1 TAB(S) QAM - ONCE A DAY (IN THE MORNING) QAM - ONCE A DAY (IN THE MORNING)
     Route: 048
     Dates: start: 20221014, end: 20221112
  3. ALBUTEROL SULFATE [Concomitant]
     Active Substance: ALBUTEROL SULFATE
     Dosage: FFA CFC FREE 90 MCG/INH AEROSOL INHALATION
  4. COMBIVENT [Concomitant]
     Active Substance: ALBUTEROL SULFATE\IPRATROPIUM BROMIDE
     Dosage: RESPIRNAT CFC FREE 100 MCG-20 MCG/INH AEROSOL INHALATION
  5. ELIQUIS [Concomitant]
     Active Substance: APIXABAN
     Dosage: 1.0 TAB(S) BID - 2 TIMES A DAY
     Route: 048
  6. FERROUS SULFATE [Concomitant]
     Active Substance: FERROUS SULFATE
     Dosage: 1.0 TAB(S) QD - DALLY EVERY DAY
     Route: 048
  7. FOLIC ACID [Concomitant]
     Active Substance: FOLIC ACID
     Dosage: 1.0 TAB(S) QD- DAILY EVERY DAY
     Route: 048
  8. FUROSEMIDE [Concomitant]
     Active Substance: FUROSEMIDE
     Dosage: 1.0 TAB(S) TID - 3 TIMES A DAY
     Route: 048
  9. GABAPENTIN [Concomitant]
     Active Substance: GABAPENTIN
     Dosage: 1.0 TAB(S) TID - 3 TIMES A DAY
     Route: 048
  10. LIDOCAINE [Concomitant]
     Active Substance: LIDOCAINE
     Dosage: 1 PATCH DAILY PRN PRN
     Route: 061
  11. MAGNESIUM OXIDE [Concomitant]
     Active Substance: MAGNESIUM OXIDE
     Dosage: 2.0 TAB(S)  QD - DAILY EVERY DAY
     Route: 048
  12. METHYLPHENIDATE [Concomitant]
     Active Substance: METHYLPHENIDATE
     Dosage: 2.0 TAB(S) QD - DAILY EVERY DAY
     Route: 048
  13. METOPROLOL TARTRATE [Concomitant]
     Active Substance: METOPROLOL TARTRATE
     Dosage: 1/2 TAB BID - 2 TIMES A DAY
     Route: 048
  14. ONDANSETRON [Concomitant]
     Active Substance: ONDANSETRON
     Dosage: 1.0 TAB(S) PRN
     Route: 048
  15. PANTOPRAZOLE [Concomitant]
     Active Substance: PANTOPRAZOLE
     Dosage: 1.0 TAB(S) QD - DAILY EVERY DAY
     Route: 048
  16. PEPCID [Concomitant]
     Active Substance: FAMOTIDINE
     Dosage: 1.0 TAB(S) QHS, ONCE A DAY (AT BEDTIME)
     Route: 048
  17. SERTRALINE [Concomitant]
     Active Substance: SERTRALINE HYDROCHLORIDE
     Dosage: 1.0 TAB(S) PRN
     Route: 048
  18. Symbicott [Concomitant]
     Dosage: 160 MCG-4.5 MCG/INH AEROSOL INHALATION
  19. VITAMIN B1 [Concomitant]
     Active Substance: THIAMINE HYDROCHLORIDE
     Dosage: 1.0 TAB(S) QD- DAILY EVERY DAY
     Route: 048
  20. VITAMIN B12 [Concomitant]
     Active Substance: CYANOCOBALAMIN
     Dosage: 2.0 TAB(S) QD - DAILY EVERY DAY
     Route: 048
  21. Vitarnin C [Concomitant]
     Dosage: 1.0 CAP(S) QD - DAILY EVERY DAY
     Route: 048
  22. ZENPEP [Concomitant]
     Active Substance: PANCRELIPASE AMYLASE\PANCRELIPASE LIPASE\PANCRELIPASE PROTEASE
     Dosage: 40,000 UNITS-126,000 UNITS-168,000 UNITS DELAYED RELEASE CAPSULE ORAL 1.0 CAP(S) TID - 3 TIMES A DAY
     Route: 048
  23. ADDERALL [Concomitant]
     Active Substance: AMPHETAMINE ASPARTATE\AMPHETAMINE SULFATE\DEXTROAMPHETAMINE SACCHARATE\DEXTROAMPHETAMINE SULFATE
     Dosage: 1.0 TAB(S) 1.0 TAB(S)
     Route: 048

REACTIONS (8)
  - Fatigue [Unknown]
  - Depression [Unknown]
  - Confusional state [Unknown]
  - Blood pressure increased [Unknown]
  - Dizziness [Unknown]
  - Anxiety [Unknown]
  - Therapeutic response decreased [Unknown]
  - Product dose omission issue [Unknown]
